FAERS Safety Report 11884661 (Version 3)
Quarter: 2016Q1

REPORT INFORMATION
  Report Type: Report from Study
  Country: FR (occurrence: FR)
  Receive Date: 20160104
  Receipt Date: 20160301
  Transmission Date: 20160526
  Serious: Yes (Death, Life-Threatening, Hospitalization, Other)
  Sender: FDA-Public Use
  Company Number: FR-ROCHE-1605498

PATIENT
  Age: 69 Year
  Sex: Male
  Weight: 57.8 kg

DRUGS (12)
  1. KARDEGIC [Concomitant]
     Active Substance: ASPIRIN LYSINE
     Route: 065
     Dates: start: 2012
  2. ZOPICLONE [Concomitant]
     Active Substance: ZOPICLONE
     Route: 065
     Dates: start: 201504
  3. TIOTROPIUM [Concomitant]
     Active Substance: TIOTROPIUM
     Route: 065
     Dates: start: 2014
  4. ESOMEPRAZOL [Concomitant]
     Active Substance: ESOMEPRAZOLE
     Route: 065
     Dates: start: 2014
  5. VEMURAFENIB [Suspect]
     Active Substance: VEMURAFENIB
     Indication: NON-SMALL CELL LUNG CANCER
     Dosage: LAST DOSE PRIOR TO SAE ON 05/JUL/2015. ON 06/JUL/2015, DRUG WAS INTERRUPTED.
     Route: 048
     Dates: start: 20150403, end: 20150706
  6. VEMURAFENIB [Suspect]
     Active Substance: VEMURAFENIB
     Dosage: DRUG WAS RESTARTED.?LAST DOSE PRIOR TO SAE ON 03/OCT/2015
     Route: 048
     Dates: start: 20150722, end: 20151004
  7. LOPERAMID [Concomitant]
     Active Substance: LOPERAMIDE
     Route: 065
     Dates: start: 20150526
  8. PARACETAMOL [Concomitant]
     Active Substance: ACETAMINOPHEN
     Route: 065
     Dates: start: 201504
  9. METFORMINE [Concomitant]
     Active Substance: METFORMIN HYDROCHLORIDE
     Route: 065
     Dates: start: 2014
  10. RAMIPRIL. [Concomitant]
     Active Substance: RAMIPRIL
     Route: 065
     Dates: start: 2014
  11. PREGABALIN. [Concomitant]
     Active Substance: PREGABALIN
     Route: 065
     Dates: start: 2015
  12. PANCREATINE [Concomitant]
     Route: 065
     Dates: start: 1996

REACTIONS (4)
  - Depression [Recovered/Resolved]
  - Pulmonary embolism [Recovered/Resolved]
  - Atelectasis [Recovered/Resolved]
  - Respiratory distress [Fatal]

NARRATIVE: CASE EVENT DATE: 20150706
